FAERS Safety Report 5509353-4 (Version None)
Quarter: 2007Q4

REPORT INFORMATION
  Report Type: 
  Country: None (occurrence: None)
  Receive Date: 20071106
  Receipt Date: 20071029
  Transmission Date: 20080405
  Serious: Yes (Other)
  Sender: FDA-Public Use
  Company Number: 163-21880-07101539

PATIENT
  Sex: Male

DRUGS (2)
  1. REVLIMID [Suspect]
     Indication: MULTIPLE MYELOMA
     Dosage: 25 MG, 1 IN 1 D, ORAL
     Route: 048
     Dates: start: 20071025
  2. DEXAMETHASONE TAB [Concomitant]

REACTIONS (3)
  - HAEMOTHORAX [None]
  - HEPATIC FAILURE [None]
  - TUMOUR LYSIS SYNDROME [None]
